FAERS Safety Report 8800266 (Version 2)
Quarter: 2014Q3

REPORT INFORMATION
  Report Type: Report from Study
  Country: US (occurrence: US)
  Receive Date: 20120921
  Receipt Date: 20140825
  Transmission Date: 20150326
  Serious: Yes (Death, Other)
  Sender: FDA-Public Use
  Company Number: US-ROCHE-1102461

PATIENT
  Sex: Female
  Weight: 72.5 kg

DRUGS (2)
  1. AVASTIN [Suspect]
     Active Substance: BEVACIZUMAB
     Indication: UTERINE CANCER
  2. AVASTIN [Suspect]
     Active Substance: BEVACIZUMAB
     Indication: OVARIAN CANCER
     Dosage: VIAL SIZE: 100MG
     Route: 042

REACTIONS (4)
  - Death [Fatal]
  - Oral pain [Unknown]
  - Off label use [Unknown]
  - Metastases to abdominal cavity [Unknown]
